FAERS Safety Report 10254926 (Version 1)
Quarter: 2014Q2

REPORT INFORMATION
  Report Type: Spontaneous
  Country: CH (occurrence: CH)
  Receive Date: 20140624
  Receipt Date: 20140624
  Transmission Date: 20141212
  Serious: Yes (Hospitalization)
  Sender: FDA-Public Use
  Company Number: CH-SA-2014SA078882

PATIENT
  Age: 89 Year
  Sex: Male

DRUGS (8)
  1. CORDARONE [Suspect]
     Indication: CARDIAC FLUTTER
     Route: 048
     Dates: start: 2008, end: 20131216
  2. PLAVIX [Suspect]
     Indication: ATRIAL FIBRILLATION
     Route: 048
     Dates: start: 2008, end: 20131015
  3. XGEVA [Suspect]
     Indication: PROSTATE CANCER METASTATIC
     Route: 058
     Dates: start: 20131119, end: 20131213
  4. CASODEX [Concomitant]
     Indication: PROSTATE CANCER METASTATIC
     Route: 048
     Dates: start: 20130916, end: 20131017
  5. PAMORELIN [Concomitant]
     Indication: PROSTATE CANCER METASTATIC
     Dosage: FREQUENCY: 1 PER 6 MONTH
     Route: 030
     Dates: start: 20130927
  6. ASPIRINE [Concomitant]
     Indication: ATRIAL FIBRILLATION
     Route: 048
     Dates: start: 20131107
  7. LANTUS [Concomitant]
     Indication: INSULIN-REQUIRING TYPE 2 DIABETES MELLITUS
     Route: 058
     Dates: start: 2011
  8. RANITIDINE HYDROCHLORIDE [Concomitant]
     Indication: DUODENAL ULCER
     Route: 048
     Dates: start: 2008

REACTIONS (3)
  - Hyperthyroidism [Not Recovered/Not Resolved]
  - Subdural haematoma [Recovered/Resolved]
  - Hypocalcaemia [Not Recovered/Not Resolved]
